FAERS Safety Report 9511819 (Version 1)
Quarter: 2013Q3

REPORT INFORMATION
  Report Type: Spontaneous
  Country: GB (occurrence: None)
  Receive Date: 20130906
  Receipt Date: 20130906
  Transmission Date: 20140515
  Serious: Yes (Other)
  Sender: FDA-Public Use
  Company Number: FK201303864

PATIENT
  Age: 42 Year
  Sex: Male

DRUGS (4)
  1. PROPOFOL [Suspect]
     Indication: SEDATION
     Dosage: 1, 120MG/H
  2. OLANZAPINE [Suspect]
     Indication: PRODUCT USED FOR UNKNOWN INDICATION
  3. RAMIPRIL (RAMIPRIL) (RAMIPRIL) [Concomitant]
  4. CITALOPRAM (CITALOPRAM) (CITALOPRAM) [Concomitant]

REACTIONS (4)
  - Polyuria [None]
  - Overdose [None]
  - Urine osmolarity decreased [None]
  - Blood osmolarity increased [None]
